FAERS Safety Report 20936657 (Version 1)
Quarter: 2022Q2

REPORT INFORMATION
  Report Type: Spontaneous
  Country: US (occurrence: None)
  Receive Date: 20220609
  Receipt Date: 20220609
  Transmission Date: 20220721
  Serious: No
  Sender: FDA-Public Use
  Company Number: US-ROCHE-2930614

PATIENT
  Age: 63 Year
  Sex: Female
  Weight: 99.880 kg

DRUGS (2)
  1. ACTEMRA [Suspect]
     Active Substance: TOCILIZUMAB
     Indication: Arthralgia
     Route: 058
     Dates: start: 20211007
  2. OPDIVO [Concomitant]
     Active Substance: NIVOLUMAB
     Indication: Mesothelioma
     Dosage: ONCE A DAY
     Route: 065

REACTIONS (2)
  - Off label use [Unknown]
  - No adverse event [Unknown]

NARRATIVE: CASE EVENT DATE: 20211007
